FAERS Safety Report 11654094 (Version 1)
Quarter: 2015Q4

REPORT INFORMATION
  Report Type: Report from Study
  Country: US (occurrence: US)
  Receive Date: 20151023
  Receipt Date: 20151023
  Transmission Date: 20160304
  Serious: Yes (Other)
  Sender: FDA-Public Use
  Company Number: US-AMGEN-USASP2015110180

PATIENT
  Age: 61 Year
  Sex: Female

DRUGS (1)
  1. ENBREL [Suspect]
     Active Substance: ETANERCEPT
     Indication: RHEUMATOID ARTHRITIS
     Dosage: 50 MG, QWK
     Route: 065
     Dates: start: 2002

REACTIONS (5)
  - Inappropriate schedule of drug administration [Unknown]
  - Visual impairment [Not Recovered/Not Resolved]
  - Ophthalmic herpes zoster [Unknown]
  - Drug dose omission [Unknown]
  - Corneal scar [Unknown]

NARRATIVE: CASE EVENT DATE: 2010
